FAERS Safety Report 9787925 (Version 2)
Quarter: 2013Q4

REPORT INFORMATION
  Report Type: Report from Study
  Country: US (occurrence: US)
  Receive Date: 20131230
  Receipt Date: 20131230
  Transmission Date: 20140711
  Serious: Yes (Death, Hospitalization, Other)
  Sender: FDA-Public Use
  Company Number: US-ACTELION-A-US2013-91537

PATIENT
  Age: 58 Year
  Sex: Female

DRUGS (2)
  1. TRACLEER [Suspect]
     Indication: PULMONARY ARTERIAL HYPERTENSION
     Dosage: UNK
     Route: 048
  2. COUMADIN [Concomitant]

REACTIONS (8)
  - Death [Fatal]
  - Fluid retention [Unknown]
  - Cardiac cirrhosis [Unknown]
  - Dysphonia [Unknown]
  - Oedema peripheral [Unknown]
  - Fluid overload [Unknown]
  - Dyspnoea [Unknown]
  - Dizziness [Unknown]
